APPROVED DRUG PRODUCT: ZEGERID OTC
Active Ingredient: OMEPRAZOLE; SODIUM BICARBONATE
Strength: 20MG/PACKET;1.68GM/PACKET
Dosage Form/Route: FOR SUSPENSION;ORAL
Application: N022283 | Product #001
Applicant: RILEY CONSUMER CARE LLC DBA CARLIN CONSUMER HEALTH
Approved: Jun 17, 2013 | RLD: Yes | RS: Yes | Type: OTC